FAERS Safety Report 17449555 (Version 3)
Quarter: 2020Q3

REPORT INFORMATION
  Report Type: Report from Study
  Country: US (occurrence: US)
  Receive Date: 20200224
  Receipt Date: 20200914
  Transmission Date: 20201102
  Serious: No
  Sender: FDA-Public Use
  Company Number: NVSC2020US050565

PATIENT
  Sex: Female

DRUGS (2)
  1. COSENTYX [Suspect]
     Active Substance: SECUKINUMAB
     Dosage: 150 MG, Q2W
     Route: 058
  2. COSENTYX [Suspect]
     Active Substance: SECUKINUMAB
     Indication: PSORIATIC ARTHROPATHY
     Dosage: 300 MG (QW FOR 5 WEEKS THEN Q4W)
     Route: 058
     Dates: start: 201911

REACTIONS (3)
  - Therapeutic product effect decreased [Unknown]
  - Device use issue [Unknown]
  - Pharyngitis streptococcal [Recovering/Resolving]
